FAERS Safety Report 5602221-9 (Version None)
Quarter: 2008Q1

REPORT INFORMATION
  Report Type: 
  Country: None (occurrence: None)
  Receive Date: 20080125
  Receipt Date: 20080115
  Transmission Date: 20080703
  Serious: Yes (Other)
  Sender: FDA-Public Use
  Company Number: US-ASTRAZENECA-2006UW27474

PATIENT
  Age: 641 Month
  Sex: Male
  Weight: 133.2 kg

DRUGS (5)
  1. SEROQUEL [Suspect]
     Indication: ANXIETY
     Dosage: 300 TO 600 MG
     Route: 048
     Dates: start: 20050901, end: 20060830
  2. SEROQUEL [Suspect]
     Indication: DEPRESSION
     Dosage: 300 TO 600 MG
     Route: 048
     Dates: start: 20050901, end: 20060830
  3. SEROQUEL [Suspect]
     Indication: SLEEP DISORDER
     Dosage: 300 TO 600 MG
     Route: 048
     Dates: start: 20050901, end: 20060830
  4. ABILIFY [Concomitant]
  5. ZYPREXA [Concomitant]
     Dates: start: 19990101

REACTIONS (5)
  - BLOOD CHOLESTEROL INCREASED [None]
  - BLOOD TRIGLYCERIDES INCREASED [None]
  - DIABETES MELLITUS [None]
  - DIABETIC COMPLICATION [None]
  - PENILE PROSTHESIS USER [None]
